FAERS Safety Report 12560364 (Version 1)
Quarter: 2016Q3

REPORT INFORMATION
  Report Type: Spontaneous
  Country: US (occurrence: US)
  Receive Date: 20160715
  Receipt Date: 20160715
  Transmission Date: 20161109
  Serious: No
  Sender: FDA-Public Use
  Company Number: US-JNJFOC-20160523748

PATIENT
  Sex: Female

DRUGS (5)
  1. BABY ASPIRIN [Concomitant]
     Active Substance: ASPIRIN
     Indication: PRODUCT USED FOR UNKNOWN INDICATION
     Dosage: 2 YRS
     Route: 065
  2. MULTIVITAMINS [Concomitant]
     Active Substance: VITAMINS
     Indication: ROUTINE HEALTH MAINTENANCE
     Dosage: 30-40 YEARS
     Route: 065
  3. MENS ROGAINE EXTRA STRENGTH [Suspect]
     Active Substance: MINOXIDIL
     Indication: ANDROGENETIC ALOPECIA
     Dosage: 1 DROPPERFUL
     Route: 061
  4. PRAVASTATIN. [Concomitant]
     Active Substance: PRAVASTATIN
     Indication: BLOOD CHOLESTEROL INCREASED
     Dosage: YEARS
     Route: 065
  5. MENS ROGAINE EXTRA STRENGTH [Suspect]
     Active Substance: MINOXIDIL
     Indication: ALOPECIA
     Dosage: 1 DROPPERFUL
     Route: 061

REACTIONS (4)
  - Drug administered at inappropriate site [Recovering/Resolving]
  - Off label use [Recovering/Resolving]
  - Product use issue [Recovering/Resolving]
  - Hair growth abnormal [Recovering/Resolving]
